FAERS Safety Report 5878561-5 (Version None)
Quarter: 2008Q3

REPORT INFORMATION
  Report Type: 
  Country: None (occurrence: None)
  Receive Date: 20080910
  Receipt Date: 20080826
  Transmission Date: 20090109
  Serious: Yes (Death, Hospitalization)
  Sender: FDA-Public Use
  Company Number: 2008BI021701

PATIENT
  Age: 65 Year
  Sex: Female

DRUGS (5)
  1. TYSABRI [Suspect]
     Indication: MULTIPLE SCLEROSIS
     Dosage: 300 MG;QM;IV
     Route: 042
     Dates: start: 20070504, end: 20080331
  2. PRIMAXIN [Concomitant]
  3. AVONEX [Concomitant]
  4. COPAXONE [Concomitant]
  5. BETASERON [Concomitant]

REACTIONS (5)
  - ANXIETY [None]
  - GENERAL PHYSICAL HEALTH DETERIORATION [None]
  - PAIN [None]
  - PNEUMONIA ASPIRATION [None]
  - WEIGHT DECREASED [None]
